FAERS Safety Report 14431411 (Version 2)
Quarter: 2018Q1

REPORT INFORMATION
  Report Type: Spontaneous
  Country: US (occurrence: US)
  Receive Date: 20180124
  Receipt Date: 20180306
  Transmission Date: 20180509
  Serious: No
  Sender: FDA-Public Use
  Company Number: US-PFIZER INC-2018029061

PATIENT
  Age: 9 Year
  Sex: Female

DRUGS (1)
  1. EUCRISA [Suspect]
     Active Substance: CRISABOROLE
     Indication: DERMATITIS ATOPIC
     Dosage: UNK, 2X/DAY (SMALL AMT.)
     Route: 061
     Dates: start: 20171205, end: 20180109

REACTIONS (2)
  - Condition aggravated [Unknown]
  - Rash [Unknown]
